APPROVED DRUG PRODUCT: METHOCARBAMOL AND ASPIRIN
Active Ingredient: ASPIRIN; METHOCARBAMOL
Strength: 325MG;400MG
Dosage Form/Route: TABLET;ORAL
Application: A087211 | Product #001
Applicant: IVAX PHARMACEUTICALS INC SUB TEVA PHARMACEUTICALS USA
Approved: Dec 22, 1982 | RLD: No | RS: No | Type: DISCN